FAERS Safety Report 20065049 (Version 3)
Quarter: 2022Q2

REPORT INFORMATION
  Report Type: Report from Study
  Country: DE (occurrence: DE)
  Receive Date: 20211113
  Receipt Date: 20220620
  Transmission Date: 20220721
  Serious: Yes (Hospitalization, Other)
  Sender: FDA-Public Use
  Company Number: DE-ABBVIE-21K-062-4158923-00

PATIENT
  Sex: Female
  Weight: 68 kg

DRUGS (9)
  1. RINVOQ [Suspect]
     Active Substance: UPADACITINIB
     Indication: Psoriatic arthropathy
     Route: 048
     Dates: start: 20210505, end: 202105
  2. RINVOQ [Suspect]
     Active Substance: UPADACITINIB
     Route: 048
     Dates: start: 20210529, end: 20211102
  3. RINVOQ [Suspect]
     Active Substance: UPADACITINIB
     Route: 048
     Dates: start: 20211109
  4. CCELECOXIB [Concomitant]
     Indication: Product used for unknown indication
     Dates: start: 20170323
  5. LEVOTHYROXINE SODIUM [Concomitant]
     Active Substance: LEVOTHYROXINE SODIUM
     Indication: Hypothyroidism
     Dates: start: 2015
  6. OMEGA 3 [Concomitant]
     Active Substance: CAPSAICIN
     Indication: Product used for unknown indication
  7. CORTISONE [Concomitant]
     Active Substance: CORTISONE
     Indication: Product used for unknown indication
     Dosage: FOAM
  8. VITAMIN D [Concomitant]
     Active Substance: VITAMIN D NOS
     Indication: Product used for unknown indication
  9. VITAMIN K [Concomitant]
     Active Substance: PHYTONADIONE
     Indication: Product used for unknown indication

REACTIONS (15)
  - Cerebral haemorrhage [Recovering/Resolving]
  - Intracranial aneurysm [Not Recovered/Not Resolved]
  - Subarachnoid haemorrhage [Unknown]
  - Cerebral mass effect [Unknown]
  - Cerebral haemorrhage [Unknown]
  - Blood pressure increased [Not Recovered/Not Resolved]
  - Disturbance in attention [Unknown]
  - Fall [Recovered/Resolved]
  - Fall [Unknown]
  - Vertigo [Unknown]
  - Disturbance in attention [Unknown]
  - Hypertension [Unknown]
  - Headache [Unknown]
  - Disorientation [Unknown]
  - Vertigo [Recovered/Resolved]

NARRATIVE: CASE EVENT DATE: 20210101
